FAERS Safety Report 5743907-5 (Version None)
Quarter: 2008Q2

REPORT INFORMATION
  Report Type: 
  Country: None (occurrence: None)
  Receive Date: 20080516
  Receipt Date: 20080506
  Transmission Date: 20081010
  Serious: Yes (Hospitalization, Other)
  Sender: FDA-Public Use
  Company Number: ADE2008-0186

PATIENT
  Age: 38 Year
  Sex: Female

DRUGS (1)
  1. FLUOXETINE HCL [Suspect]
     Indication: STRESS
     Dosage: 40MG - DAILY - ORAL
     Route: 048

REACTIONS (2)
  - MACULAR OEDEMA [None]
  - VISION BLURRED [None]
